FAERS Safety Report 4614803-1 (Version None)
Quarter: 2005Q1

REPORT INFORMATION
  Report Type: 
  Country: None (occurrence: None)
  Receive Date: 20050322
  Receipt Date: 20041220
  Transmission Date: 20050727
  Serious: Yes (Hospitalization)
  Sender: FDA-Public Use
  Company Number: FR-NOVOPROD-241259

PATIENT
  Age: 56 Year
  Sex: Female
  Weight: 53 kg

DRUGS (9)
  1. NORDITROPIN SIMPLEXX [Suspect]
     Indication: GROWTH HORMONE DEFICIENCY
     Dosage: .3 MG, QD
     Route: 058
     Dates: start: 20030730
  2. HYDROCORTISONE [Concomitant]
     Indication: HYPOPITUITARISM
     Dosage: 20 MG, QD
     Route: 048
     Dates: start: 19880101
  3. LEVOTHYROX [Concomitant]
     Indication: THYROID DISORDER
     Dosage: 125 UG, QD
     Route: 048
     Dates: start: 19880101
  4. SEROPRAM [Concomitant]
     Indication: DEPRESSION
     Dosage: 20 MG, QD
     Route: 048
     Dates: start: 20031001
  5. RIVOTRIL [Concomitant]
     Dosage: 10 DROPS, QD
     Route: 048
     Dates: start: 20030915
  6. ESTREVA [Concomitant]
     Indication: MENOPAUSE
     Dosage: 3 DOSES 1/DAY, QD
     Route: 058
     Dates: start: 20030528
  7. ZOMIG [Concomitant]
     Indication: HEADACHE
     Dosage: 4 UNK, QD
  8. LAMALINE [Concomitant]
     Dosage: 4 UNK, QD
  9. PIASCLEDINE [Concomitant]
     Dosage: 4 UNK, QD

REACTIONS (10)
  - BACK PAIN [None]
  - FATIGUE [None]
  - INFLAMMATION [None]
  - MUSCULOSKELETAL PAIN [None]
  - MYOKYMIA [None]
  - NECK PAIN [None]
  - OSTEOARTHRITIS [None]
  - PAIN IN EXTREMITY [None]
  - PARAESTHESIA [None]
  - PERIPHERAL SENSORY NEUROPATHY [None]
